FAERS Safety Report 20050482 (Version 1)
Quarter: 2021Q4

REPORT INFORMATION
  Report Type: Spontaneous
  Country: KR (occurrence: KR)
  Receive Date: 20211109
  Receipt Date: 20211109
  Transmission Date: 20220303
  Serious: Yes (Hospitalization, Other)
  Sender: FDA-Public Use
  Company Number: KR-KYOWAKIRIN-2021AKK018022

PATIENT
  Age: 80 Year
  Sex: Male

DRUGS (22)
  1. FILGRASTIM [Suspect]
     Active Substance: FILGRASTIM
     Indication: Product used for unknown indication
     Dosage: UNK UNK, QD
     Route: 042
     Dates: start: 20100218, end: 20100218
  2. FILGRASTIM [Suspect]
     Active Substance: FILGRASTIM
     Dosage: UNK UNK, QD
     Route: 042
     Dates: start: 20100221, end: 20100224
  3. FILGRASTIM [Suspect]
     Active Substance: FILGRASTIM
     Dosage: UNK UNK, QD
     Route: 042
     Dates: start: 20100303, end: 20100311
  4. DECITABINE [Suspect]
     Active Substance: DECITABINE
     Indication: Product used for unknown indication
     Dosage: 20 MG/M2, QD
     Route: 042
     Dates: start: 20100209, end: 20100213
  5. DECITABINE [Suspect]
     Active Substance: DECITABINE
     Dosage: 20 MG/M2, QD
     Route: 042
     Dates: start: 20100316
  6. HYDROCORTISONE [Suspect]
     Active Substance: HYDROCORTISONE
     Indication: Product used for unknown indication
     Dosage: 50 MG, QD
     Route: 042
     Dates: start: 20100219, end: 20100225
  7. CEFEPIME [Concomitant]
     Active Substance: CEFEPIME HYDROCHLORIDE
     Indication: Product used for unknown indication
     Dosage: 2 G, QD
     Route: 065
     Dates: start: 20100218, end: 20100225
  8. CEFEPIME [Concomitant]
     Active Substance: CEFEPIME HYDROCHLORIDE
     Dosage: 2 G, QD
     Route: 065
     Dates: start: 20100304, end: 20100309
  9. CHLORMADINONE [Concomitant]
     Active Substance: CHLORMADINONE
     Indication: Product used for unknown indication
     Dosage: 50 MG, QD
     Route: 065
     Dates: start: 20100302
  10. DESONIDE [Concomitant]
     Active Substance: DESONIDE
     Indication: Product used for unknown indication
     Dosage: UNK UNK, QD
     Route: 065
     Dates: start: 20100211, end: 20100212
  11. DIPHENYLPYRALINE [Concomitant]
     Active Substance: DIPHENYLPYRALINE
     Indication: Product used for unknown indication
     Dosage: 3 MG, QD
     Route: 065
     Dates: start: 20100219, end: 20100225
  12. FEXOFENADINE [Concomitant]
     Active Substance: FEXOFENADINE HYDROCHLORIDE
     Indication: Product used for unknown indication
     Dosage: 1 DF, QD
     Route: 065
     Dates: start: 20100212, end: 20100216
  13. FOLIC ACID [Concomitant]
     Active Substance: FOLIC ACID
     Indication: Product used for unknown indication
     Dosage: 1 MG, QD
     Route: 065
  14. HYDROXYZINE [Concomitant]
     Active Substance: HYDROXYZINE HYDROCHLORIDE
     Indication: Product used for unknown indication
     Dosage: 10 MG, QD
     Route: 065
     Dates: start: 20100211, end: 20100211
  15. MEGESTROL [Concomitant]
     Active Substance: MEGESTROL
     Indication: Product used for unknown indication
     Dosage: 20 ML, QD
     Route: 048
     Dates: start: 20100303, end: 20100629
  16. MEQUITAZINE [Concomitant]
     Active Substance: MEQUITAZINE
     Indication: Product used for unknown indication
     Dosage: 5 MG, QD
     Route: 065
     Dates: start: 20100211, end: 20100211
  17. METOCLOPRAMIDE [Concomitant]
     Active Substance: METOCLOPRAMIDE
     Indication: Product used for unknown indication
     Dosage: 10 MG, QD
     Route: 065
     Dates: start: 20100219, end: 20100225
  18. MOSAPRIDE [Concomitant]
     Active Substance: MOSAPRIDE
     Indication: Product used for unknown indication
     Dosage: 5 MG, QD
     Route: 065
     Dates: start: 20100225, end: 20100225
  19. PYRIDOXINE [Concomitant]
     Active Substance: PYRIDOXINE
     Indication: Product used for unknown indication
     Dosage: 50 MG, QD
     Route: 065
  20. TAMSULOSIN [Concomitant]
     Active Substance: TAMSULOSIN
     Indication: Product used for unknown indication
     Dosage: 0.2 MG, QD
     Route: 065
     Dates: end: 20100301
  21. TAMSULOSIN [Concomitant]
     Active Substance: TAMSULOSIN
     Dosage: 0.4 MG, QD
     Route: 065
     Dates: start: 20100302
  22. TOLTERODINE [Concomitant]
     Active Substance: TOLTERODINE
     Indication: Product used for unknown indication
     Dosage: 2 MG, QD
     Route: 065
     Dates: start: 20100302

REACTIONS (2)
  - Febrile neutropenia [Recovered/Resolved]
  - Neutropenia [Recovered/Resolved]

NARRATIVE: CASE EVENT DATE: 20100218
